FAERS Safety Report 9423274 (Version 2)
Quarter: 2013Q3

REPORT INFORMATION
  Report Type: Spontaneous
  Country: US (occurrence: US)
  Receive Date: 20130726
  Receipt Date: 20130822
  Transmission Date: 20140515
  Serious: No
  Sender: FDA-Public Use
  Company Number: US-TEVA-421193USA

PATIENT
  Age: 40 Year
  Sex: Female
  Weight: 136.2 kg

DRUGS (1)
  1. PARAGARD 380A [Suspect]
     Indication: CONTRACEPTION
     Route: 015
     Dates: start: 20130522, end: 20130722

REACTIONS (4)
  - Device expulsion [Recovered/Resolved]
  - Metrorrhagia [Recovered/Resolved]
  - Breast tenderness [Recovered/Resolved]
  - Mood altered [Recovered/Resolved]
